FAERS Safety Report 7020992-4 (Version None)
Quarter: 2010Q3

REPORT INFORMATION
  Report Type: 
  Country: None (occurrence: None)
  Receive Date: 20100929
  Receipt Date: 20100927
  Transmission Date: 20110219
  Serious: Yes (Hospitalization, Other)
  Sender: FDA-Public Use
  Company Number: GB-AMGEN-KDC434985

PATIENT
  Sex: Male

DRUGS (4)
  1. VECTIBIX [Suspect]
     Indication: GASTROOESOPHAGEAL CANCER
     Dates: start: 20100625, end: 20100627
  2. EPIRUBICIN [Suspect]
     Dates: start: 20100625, end: 20100627
  3. OXALIPLATIN [Suspect]
     Dates: start: 20100625, end: 20100627
  4. CAPECITABINE [Suspect]
     Dates: start: 20100625, end: 20100627

REACTIONS (2)
  - DIARRHOEA [None]
  - FEBRILE NEUTROPENIA [None]
